FAERS Safety Report 5881775-1 (Version None)
Quarter: 2008Q3

REPORT INFORMATION
  Report Type: 
  Country: None (occurrence: None)
  Receive Date: 20080912
  Receipt Date: 20080710
  Transmission Date: 20090109
  Serious: No
  Sender: FDA-Public Use
  Company Number: US-ABBOTT-08P-163-0462519-00

PATIENT
  Sex: Female
  Weight: 63.56 kg

DRUGS (6)
  1. HUMIRA [Suspect]
     Indication: PSORIASIS
     Route: 030
     Dates: start: 20060223, end: 20080601
  2. HUMIRA [Suspect]
     Indication: PSORIATIC ARTHROPATHY
  3. IBUPROFEN [Concomitant]
     Indication: PAIN
     Route: 048
  4. CYCLOBENZAPRINE HCL [Concomitant]
     Indication: MUSCLE SPASMS
     Dosage: ONE TABLET AT HS
     Route: 048
  5. TRAMADOL HCL [Concomitant]
     Indication: PAIN
     Route: 048
  6. BREVA [Concomitant]
     Indication: ASTHMA
     Route: 055

REACTIONS (8)
  - ASTHMA [None]
  - BRONCHITIS [None]
  - CHEST PAIN [None]
  - COUGH [None]
  - EXPOSURE TO COMMUNICABLE DISEASE [None]
  - HERPES ZOSTER [None]
  - PNEUMONIA [None]
  - PYREXIA [None]
